FAERS Safety Report 23728249 (Version 1)
Quarter: 2024Q2

REPORT INFORMATION
  Report Type: Spontaneous
  Country: US (occurrence: None)
  Receive Date: 20240410
  Receipt Date: 20240410
  Transmission Date: 20240715
  Serious: No
  Sender: FDA-Public Use
  Company Number: None

PATIENT

DRUGS (2)
  1. DROPERIDOL [Suspect]
     Active Substance: DROPERIDOL
     Route: 042
  2. DEXAMETHASONE SODIUM PHOSPHATE [Suspect]
     Active Substance: DEXAMETHASONE PHOSPHATE\DEXAMETHASONE SODIUM PHOSPHATE

REACTIONS (1)
  - Product packaging confusion [None]
